FAERS Safety Report 23124852 (Version 1)
Quarter: 2023Q4

REPORT INFORMATION
  Report Type: Spontaneous
  Country: AU (occurrence: AU)
  Receive Date: 20231030
  Receipt Date: 20231030
  Transmission Date: 20240110
  Serious: Yes (Death, Hospitalization, Other)
  Sender: FDA-Public Use
  Company Number: AU-SA-SAC20231027000326

PATIENT
  Age: 77 Year
  Sex: Male

DRUGS (5)
  1. ISATUXIMAB [Suspect]
     Active Substance: ISATUXIMAB
     Indication: Renal amyloidosis
     Dosage: 786 MG
     Route: 042
     Dates: start: 20221110, end: 20221110
  2. DEXAMETHASONE [Suspect]
     Active Substance: DEXAMETHASONE
     Indication: Renal amyloidosis
     Dosage: 10 MG QW
     Route: 048
     Dates: start: 20221027
  3. DEXAMETHASONE [Suspect]
     Active Substance: DEXAMETHASONE
     Dosage: 6 MG
     Route: 048
     Dates: start: 20221123, end: 20221127
  4. DEXAMETHASONE [Suspect]
     Active Substance: DEXAMETHASONE
     Dosage: UNK
     Dates: start: 20221128, end: 20221207
  5. POMALIDOMIDE [Suspect]
     Active Substance: POMALIDOMIDE
     Indication: Renal amyloidosis
     Dosage: 3 MG, QD
     Route: 048
     Dates: start: 20221027, end: 20221123

REACTIONS (3)
  - Bronchopulmonary aspergillosis [Fatal]
  - Respiratory failure [Fatal]
  - COVID-19 pneumonia [Fatal]

NARRATIVE: CASE EVENT DATE: 20221121
